FAERS Safety Report 16343493 (Version 3)
Quarter: 2019Q2

REPORT INFORMATION
  Report Type: Spontaneous
  Country: GR (occurrence: GR)
  Receive Date: 20190522
  Receipt Date: 20190524
  Transmission Date: 20190711
  Serious: Yes (Hospitalization, Other)
  Sender: FDA-Public Use
  Company Number: GR-ENDO PHARMACEUTICALS INC-2019-104769

PATIENT
  Age: 45 Year
  Sex: Female
  Weight: 77 kg

DRUGS (3)
  1. OLANZAPINE. [Suspect]
     Active Substance: OLANZAPINE
     Indication: PRODUCT USED FOR UNKNOWN INDICATION
     Dosage: 28 TABLETS OF 5MG (IMMEDIATE RELEASE), UNKNOWN
     Route: 065
  2. ALCOHOL. [Suspect]
     Active Substance: ALCOHOL
     Indication: PRODUCT USED FOR UNKNOWN INDICATION
     Dosage: UNK UNKNOWN, UNKNOWN
     Route: 065
  3. OXCARBAZEPINE. [Suspect]
     Active Substance: OXCARBAZEPINE
     Indication: PRODUCT USED FOR UNKNOWN INDICATION
     Dosage: 50 TABLETS OF 600 MG (IMMEDIATE RELEASE), UNKNOWN
     Route: 065

REACTIONS (4)
  - Dysarthria [Unknown]
  - Somnolence [Recovered/Resolved]
  - Hyponatraemia [Recovered/Resolved]
  - Intentional overdose [Recovered/Resolved]
